FAERS Safety Report 16531786 (Version 1)
Quarter: 2019Q3

REPORT INFORMATION
  Report Type: Spontaneous
  Country: US (occurrence: US)
  Receive Date: 20190705
  Receipt Date: 20190705
  Transmission Date: 20191004
  Serious: No
  Sender: FDA-Public Use
  Company Number: US-009507513-1906USA003605

PATIENT
  Age: 73 Year
  Sex: Female

DRUGS (1)
  1. TICE BCG [Suspect]
     Active Substance: BACILLUS CALMETTE-GUERIN SUBSTRAIN TICE LIVE ANTIGEN
     Indication: BLADDER CANCER
     Dosage: UNK, ROUTE OF ADMINISTRATION: IN THE BLADDER
     Route: 043
     Dates: start: 2018

REACTIONS (4)
  - Blood urine present [Not Recovered/Not Resolved]
  - Product availability issue [Unknown]
  - Product dose omission [Unknown]
  - Intentional product use issue [Unknown]

NARRATIVE: CASE EVENT DATE: 2018
